FAERS Safety Report 14181025 (Version 1)
Quarter: 2017Q4

REPORT INFORMATION
  Report Type: Spontaneous
  Country: US (occurrence: None)
  Receive Date: 20171112
  Receipt Date: 20171112
  Transmission Date: 20180321
  Serious: Yes (Other)
  Sender: FDA-Public Use
  Company Number: None

PATIENT
  Age: 28 Year
  Sex: Female
  Weight: 45.36 kg

DRUGS (2)
  1. PRECARDIA [Concomitant]
  2. NEXPLANON [Suspect]
     Active Substance: ETONOGESTREL

REACTIONS (6)
  - Parosmia [None]
  - Vomiting [None]
  - Weight decreased [None]
  - Asthenia [None]
  - Hunger [None]
  - Malaise [None]

NARRATIVE: CASE EVENT DATE: 20170127
